FAERS Safety Report 6779150-0 (Version None)
Quarter: 2010Q2

REPORT INFORMATION
  Report Type: 
  Country: None (occurrence: None)
  Receive Date: 20100618
  Receipt Date: 20100609
  Transmission Date: 20101027
  Serious: Yes (Other)
  Sender: FDA-Public Use
  Company Number: PT-ASTRAZENECA-2010SE27603

PATIENT
  Age: 140 Month
  Sex: Male

DRUGS (2)
  1. PULMICORT [Suspect]
     Route: 055
     Dates: start: 20081201
  2. MONTELUKAST SODIUM [Concomitant]
     Route: 048
     Dates: start: 20080101

REACTIONS (3)
  - COUGH [None]
  - DYSPNOEA [None]
  - PRURITUS [None]
